FAERS Safety Report 6035605-8 (Version None)
Quarter: 2009Q1

REPORT INFORMATION
  Report Type: 
  Country: None (occurrence: None)
  Receive Date: 20090113
  Receipt Date: 20090105
  Transmission Date: 20090719
  Serious: Yes (Other)
  Sender: FDA-Public Use
  Company Number: PHEH2007US12631

PATIENT
  Sex: Female

DRUGS (2)
  1. AREDIA [Suspect]
     Indication: MULTIPLE MYELOMA
  2. ZOMETA [Suspect]
     Indication: MULTIPLE MYELOMA

REACTIONS (12)
  - ANHEDONIA [None]
  - ANXIETY [None]
  - DEFORMITY [None]
  - EMOTIONAL DISTRESS [None]
  - EXOSTOSIS [None]
  - LIFE EXPECTANCY SHORTENED [None]
  - LYMPHADENOPATHY [None]
  - OSTEONECROSIS [None]
  - PAIN [None]
  - SCOLIOSIS [None]
  - SINUS DISORDER [None]
  - SPONDYLOLISTHESIS [None]
